FAERS Safety Report 23603807 (Version 1)
Quarter: 2024Q1

REPORT INFORMATION
  Report Type: Spontaneous
  Country: NL (occurrence: NL)
  Receive Date: 20240307
  Receipt Date: 20240307
  Transmission Date: 20240410
  Serious: Yes (Other)
  Sender: FDA-Public Use
  Company Number: NL-LRB-00951956

PATIENT
  Age: 52 Year
  Sex: Female
  Weight: 86 kg

DRUGS (1)
  1. MONTELUKAST SODIUM [Suspect]
     Active Substance: MONTELUKAST SODIUM
     Indication: Asthma
     Dosage: 10 MILLIGRAM, ONCE A DAY(1X PER DAG SAVONDS)
     Route: 065
     Dates: start: 20240122, end: 20240208

REACTIONS (9)
  - Fatigue [Recovering/Resolving]
  - Memory impairment [Recovering/Resolving]
  - Feeling cold [Recovering/Resolving]
  - Asthenia [Recovering/Resolving]
  - Headache [Recovering/Resolving]
  - Nightmare [Recovering/Resolving]
  - Haematoma [Recovering/Resolving]
  - Irritability [Recovering/Resolving]
  - Depressed mood [Recovering/Resolving]
